FAERS Safety Report 5182223-X (Version None)
Quarter: 2006Q4

REPORT INFORMATION
  Report Type: 
  Country: None (occurrence: None)
  Receive Date: 20061220
  Receipt Date: 20061117
  Transmission Date: 20070319
  Serious: Yes (Other)
  Sender: FDA-Public Use
  Company Number: 2006UW25856

PATIENT
  Age: 40 Year
  Sex: Female

DRUGS (1)
  1. NOLVADEX [Suspect]
     Indication: BREAST HYPERPLASIA
     Route: 048
     Dates: start: 20060929, end: 20061116

REACTIONS (25)
  - ABDOMINAL DISCOMFORT [None]
  - ANOREXIA [None]
  - APATHY [None]
  - ASCITES [None]
  - CERVICITIS [None]
  - DIARRHOEA [None]
  - ENDOMETRIAL HYPERTROPHY [None]
  - FATIGUE [None]
  - FLATULENCE [None]
  - GASTRITIS [None]
  - GASTRITIS EROSIVE [None]
  - HOT FLUSH [None]
  - LEIOMYOMA [None]
  - MALAISE [None]
  - NAUSEA [None]
  - OVARIAN DISORDER [None]
  - OVARIAN HAEMORRHAGE [None]
  - PAIN IN EXTREMITY [None]
  - PELVIC PAIN [None]
  - PERIPHERAL VASCULAR DISORDER [None]
  - POLLAKIURIA [None]
  - PRURITUS [None]
  - TRANSAMINASES INCREASED [None]
  - WEIGHT DECREASED [None]
  - YELLOW SKIN [None]
